FAERS Safety Report 7911446-9 (Version None)
Quarter: 2011Q4

REPORT INFORMATION
  Report Type: 
  Country: None (occurrence: None)
  Receive Date: 20111102
  Receipt Date: 20110722
  Transmission Date: 20120403
  Serious: Yes (Other)
  Sender: FDA-Public Use
  Company Number: AUR-APL-2011-04439

PATIENT
  Age: 35 Year
  Sex: Female
  Weight: 43.54 kg

DRUGS (2)
  1. VENLAFAXINE [Suspect]
     Indication: ENDOMETRIOSIS
     Dosage: 150 MG, 1 D, ORAL
     Route: 048
     Dates: start: 20110614, end: 20110701
  2. EFFEXOR [Suspect]
     Indication: ENDOMETRIOSIS
     Dosage: 150 MG, 1 D, ORAL
     Route: 048
     Dates: start: 20070101, end: 20110101

REACTIONS (6)
  - AGGRESSION [None]
  - PERSONALITY CHANGE DUE TO A GENERAL MEDICAL CONDITION [None]
  - HYPERSOMNIA [None]
  - ANXIETY [None]
  - AGITATION [None]
  - PANIC ATTACK [None]
